FAERS Safety Report 10647347 (Version 1)
Quarter: 2014Q4

REPORT INFORMATION
  Report Type: Spontaneous
  Country: US (occurrence: US)
  Receive Date: 20141211
  Receipt Date: 20141211
  Transmission Date: 20150529
  Serious: Yes (Other)
  Sender: FDA-Public Use
  Company Number: ALCN2014US006974

PATIENT
  Age: 82 Year
  Sex: Male

DRUGS (3)
  1. VIGAMOX [Suspect]
     Active Substance: MOXIFLOXACIN HYDROCHLORIDE
     Indication: CATARACT OPERATION
     Dosage: UNK
     Route: 047
     Dates: start: 20141117
  2. PREDNISOLONE ACETATE. [Suspect]
     Active Substance: PREDNISOLONE ACETATE
     Indication: CATARACT OPERATION
     Dosage: UNK
     Route: 047
     Dates: start: 20141117
  3. NEVANAC [Suspect]
     Active Substance: NEPAFENAC
     Indication: CATARACT OPERATION
     Dosage: UNK GTT, UNK
     Route: 047
     Dates: start: 20141117

REACTIONS (1)
  - Bone marrow disorder [Unknown]

NARRATIVE: CASE EVENT DATE: 20141211
